FAERS Safety Report 7477799-3 (Version None)
Quarter: 2011Q2

REPORT INFORMATION
  Report Type: 
  Country: None (occurrence: None)
  Receive Date: 20110513
  Receipt Date: 20110502
  Transmission Date: 20111010
  Serious: Yes (Other)
  Sender: FDA-Public Use
  Company Number: US-ELI_LILLY_AND_COMPANY-US201103001723

PATIENT
  Sex: Male
  Weight: 113.38 kg

DRUGS (5)
  1. HUMULIN 70/30 [Suspect]
     Indication: TYPE 2 DIABETES MELLITUS
     Dosage: 28 U, 2/D
     Route: 058
     Dates: start: 19950101
  2. VITAMINS [Concomitant]
  3. HUMULIN 70/30 [Suspect]
     Dosage: 28 U, 2/D
     Route: 058
     Dates: start: 19950101
  4. HYDROCHLOROTHIAZIDE [Concomitant]
     Dosage: UNK
  5. LISINOPRIL [Concomitant]
     Dosage: UNK

REACTIONS (3)
  - CHEST PAIN [None]
  - HYPERTENSION [None]
  - DRUG INEFFECTIVE [None]
